FAERS Safety Report 4882243-6 (Version None)
Quarter: 2006Q1

REPORT INFORMATION
  Report Type: 
  Country: None (occurrence: None)
  Receive Date: 20060117
  Receipt Date: 20060110
  Transmission Date: 20060701
  Serious: Yes (Hospitalization)
  Sender: FDA-Public Use
  Company Number: NL-AVENTIS-200610319GDDC

PATIENT
  Age: 22 Year
  Sex: Female

DRUGS (1)
  1. THEOPHYLLINE [Suspect]
     Route: 048

REACTIONS (10)
  - DRUG LEVEL INCREASED [None]
  - EPILEPSY [None]
  - HYPOKALAEMIA [None]
  - HYPOTENSION [None]
  - INTENTIONAL OVERDOSE [None]
  - NAUSEA [None]
  - PALPITATIONS [None]
  - SUICIDE ATTEMPT [None]
  - THERAPY NON-RESPONDER [None]
  - VOMITING [None]
